FAERS Safety Report 15779258 (Version 6)
Quarter: 2021Q3

REPORT INFORMATION
  Report Type: Spontaneous
  Country: US (occurrence: US)
  Receive Date: 20190101
  Receipt Date: 20210810
  Transmission Date: 20211014
  Serious: No
  Sender: FDA-Public Use
  Company Number: US-PFIZER INC-2018536071

PATIENT
  Age: 66 Year
  Sex: Male

DRUGS (1)
  1. LYRICA [Suspect]
     Active Substance: PREGABALIN
     Dosage: 150 MG, 4X/DAY (TAKE 1 CAPSULE BY MOUTH 4 TIMES A DAY BY ORAL ROUTE)
     Route: 048

REACTIONS (1)
  - Drug hypersensitivity [Unknown]
